FAERS Safety Report 16817414 (Version 4)
Quarter: 2020Q1

REPORT INFORMATION
  Report Type: Spontaneous
  Country: US (occurrence: US)
  Receive Date: 20190917
  Receipt Date: 20200116
  Transmission Date: 20200409
  Serious: Yes (Other)
  Sender: FDA-Public Use
  Company Number: US-PFIZER INC-2019395982

PATIENT
  Age: 82 Year
  Sex: Female
  Weight: 45 kg

DRUGS (2)
  1. IBRANCE [Suspect]
     Active Substance: PALBOCICLIB
     Dosage: 75 MG, CYCLIC (D 1-21 Q (EVERY) 28 D)
     Route: 048
     Dates: start: 20190509
  2. IBRANCE [Suspect]
     Active Substance: PALBOCICLIB
     Indication: BREAST CANCER METASTATIC
     Dosage: 75 MG, CYCLIC (DAILY, 1-21 Q 28 DAYS)
     Route: 048
     Dates: start: 201902

REACTIONS (6)
  - Alopecia [Unknown]
  - White blood cell count decreased [Unknown]
  - Product dose omission [Unknown]
  - Dry skin [Unknown]
  - Anaemia [Unknown]
  - Memory impairment [Unknown]

NARRATIVE: CASE EVENT DATE: 2019
